FAERS Safety Report 21342371 (Version 1)
Quarter: 2022Q3

REPORT INFORMATION
  Report Type: Spontaneous
  Country: GB (occurrence: GB)
  Receive Date: 20220916
  Receipt Date: 20220916
  Transmission Date: 20221027
  Serious: Yes (Other)
  Sender: FDA-Public Use
  Company Number: None

PATIENT
  Age: 69 Year
  Sex: Female

DRUGS (10)
  1. VENLAFAXINE [Suspect]
     Active Substance: VENLAFAXINE HYDROCHLORIDE
     Indication: Adverse drug reaction
     Dosage: 37.5MG MANE; ;
     Route: 065
     Dates: start: 20220531, end: 20220905
  2. UPADACITINIB [Suspect]
     Active Substance: UPADACITINIB
     Indication: Rheumatoid arthritis
     Dosage: 15MG DAILY; ;
     Route: 065
     Dates: start: 20210609
  3. ATORVASTATIN [Concomitant]
     Active Substance: ATORVASTATIN
     Indication: Hypercholesterolaemia
     Dosage: UNKNOWN
     Route: 065
  4. BECLOMETHASONE [Concomitant]
     Active Substance: BECLOMETHASONE
     Indication: Rhinitis perennial
     Dosage: UNKNOWN
     Route: 065
  5. CINNARIZINE [Concomitant]
     Active Substance: CINNARIZINE
     Indication: Vertigo positional
     Dosage: UNKNOWN
     Route: 065
  6. COCODAMOL [Concomitant]
     Active Substance: ACETAMINOPHEN\CODEINE PHOSPHATE
     Indication: Osteoarthritis
     Dosage: UNKNOWN
     Route: 065
  7. INDAPAMIDE [Concomitant]
     Active Substance: INDAPAMIDE
     Indication: Hypertension
     Dosage: UNKNOWN
     Route: 065
  8. LERCANIDIPINE [Concomitant]
     Active Substance: LERCANIDIPINE
     Indication: Hypertension
     Dosage: UNKNOWN
     Route: 065
  9. LEVOTHYROXINE [Concomitant]
     Active Substance: LEVOTHYROXINE
     Indication: Hypothyroidism
     Dosage: UNKNOWN
     Route: 065
  10. MOXONIDINE [Concomitant]
     Active Substance: MOXONIDINE
     Indication: Hypertension
     Dosage: UNKNOWN
     Route: 065

REACTIONS (1)
  - Increased tendency to bruise [Recovered/Resolved]

NARRATIVE: CASE EVENT DATE: 20220808
